FAERS Safety Report 9700229 (Version 1)
Quarter: 2013Q4

REPORT INFORMATION
  Report Type: Spontaneous
  Country: CA (occurrence: CA)
  Receive Date: 20131121
  Receipt Date: 20131121
  Transmission Date: 20140711
  Serious: Yes (Other)
  Sender: FDA-Public Use
  Company Number: CA-AMGEN-CANSP2013081576

PATIENT
  Age: 59 Year
  Sex: Male

DRUGS (4)
  1. ENBREL [Suspect]
     Indication: PSORIATIC ARTHROPATHY
     Dosage: 50 MG/ML, UNK
     Route: 065
     Dates: start: 20131004
  2. VITAMIN B12                        /00056201/ [Concomitant]
     Dosage: UNK
  3. MELATONIN [Concomitant]
     Dosage: UNK
  4. ARTHROTEC [Concomitant]
     Dosage: UNK
     Dates: end: 201310

REACTIONS (1)
  - Prostate cancer [Not Recovered/Not Resolved]
